FAERS Safety Report 7094162-8 (Version None)
Quarter: 2010Q4

REPORT INFORMATION
  Report Type: 
  Country: None (occurrence: None)
  Receive Date: 20101110
  Receipt Date: 20101028
  Transmission Date: 20110411
  Serious: Yes (Hospitalization)
  Sender: FDA-Public Use
  Company Number: DE-AMGEN-DEUCT2010001970

PATIENT

DRUGS (3)
  1. ENBREL [Suspect]
     Indication: RHEUMATOID ARTHRITIS
     Dosage: 25 MG, QWK
     Route: 058
     Dates: start: 20041001
  2. METHOTREXATE [Concomitant]
     Dosage: UNKNOWN
  3. GLUCOCORTICOIDS [Concomitant]

REACTIONS (1)
  - DEVICE DISLOCATION [None]
